FAERS Safety Report 12636648 (Version 1)
Quarter: 2016Q3

REPORT INFORMATION
  Report Type: Spontaneous
  Country: US (occurrence: US)
  Receive Date: 20160809
  Receipt Date: 20160809
  Transmission Date: 20161109
  Serious: No
  Sender: FDA-Public Use
  Company Number: US-BAYER-2016-144855

PATIENT
  Age: 70 Year
  Sex: Female
  Weight: 38.55 kg

DRUGS (1)
  1. ALEVE [Suspect]
     Active Substance: NAPROXEN SODIUM
     Indication: ARTHRITIS
     Dosage: 1 DF, QD
     Route: 048

REACTIONS (9)
  - Unevaluable event [None]
  - Cerebral disorder [None]
  - Disturbance in attention [None]
  - Disorientation [None]
  - Malaise [None]
  - Pain in extremity [Not Recovered/Not Resolved]
  - Nausea [None]
  - Feeling abnormal [None]
  - Product use issue [None]

NARRATIVE: CASE EVENT DATE: 20160724
